FAERS Safety Report 26050438 (Version 1)
Quarter: 2025Q4

REPORT INFORMATION
  Report Type: Spontaneous
  Country: AU (occurrence: AU)
  Receive Date: 20251116
  Receipt Date: 20251116
  Transmission Date: 20260117
  Serious: Yes (Hospitalization, Other)
  Sender: CIPLA
  Company Number: AU-TGA-0000851687

PATIENT

DRUGS (24)
  1. IRINOTECAN [Suspect]
     Active Substance: IRINOTECAN
     Indication: Colorectal cancer metastatic
     Dosage: 192 MILLIGRAM, 1 CYCLICAL (SOLUTION FOR INFUSION)
     Route: 042
     Dates: start: 20240530, end: 20250204
  2. LEUCOVORIN CALCIUM [Suspect]
     Active Substance: LEUCOVORIN CALCIUM
     Indication: Colorectal cancer metastatic
     Dosage: 860 MILLIGRAM, 1 CYCLICAL
     Route: 042
     Dates: start: 20240530, end: 20250204
  3. CANNABIDIOL [Suspect]
     Active Substance: CANNABIDIOL
     Indication: Back pain
     Dosage: UNK
     Route: 065
  4. CANNABIDIOL [Suspect]
     Active Substance: CANNABIDIOL
     Indication: Abdominal pain
     Dosage: 0.5 MILLILITER, PRN (AS NECESSARY)
     Route: 048
     Dates: start: 20250622, end: 20250703
  5. CETUXIMAB [Suspect]
     Active Substance: CETUXIMAB
     Indication: Colorectal cancer metastatic
     Dosage: 1070 MILLIGRAM, 1 CYCLICAL
     Route: 042
     Dates: start: 20240530, end: 20250529
  6. DULOXETINE HYDROCHLORIDE [Suspect]
     Active Substance: DULOXETINE HYDROCHLORIDE
     Indication: Back pain
     Dosage: UNK
     Route: 065
  7. DULOXETINE HYDROCHLORIDE [Suspect]
     Active Substance: DULOXETINE HYDROCHLORIDE
     Indication: Abdominal pain
     Dosage: 60 MILLIGRAM, QD
     Route: 048
     Dates: start: 20250618, end: 20250706
  8. ENCORAFENIB [Suspect]
     Active Substance: ENCORAFENIB
     Indication: Colorectal cancer metastatic
     Dosage: 300 MILLIGRAM, QD
     Route: 048
     Dates: start: 20240530, end: 20250611
  9. FLUOROURACIL [Suspect]
     Active Substance: FLUOROURACIL
     Indication: Colorectal cancer metastatic
     Dosage: 5125 MILLIGRAM, 1 CYCLICAL
     Route: 042
     Dates: start: 20240530, end: 20250204
  10. FLUOROURACIL [Suspect]
     Active Substance: FLUOROURACIL
     Dosage: 430 MILLIGRAM, 1 CYCLICAL
     Route: 042
     Dates: start: 20240530, end: 20250204
  11. OXALIPLATIN [Suspect]
     Active Substance: OXALIPLATIN
     Indication: Colorectal cancer metastatic
     Dosage: 180 MILLIGRAM, 1 CYCLICAL
     Route: 042
     Dates: start: 20250618
  12. NALOXONE HYDROCHLORIDE\OXYCODONE HYDROCHLORIDE [Concomitant]
     Active Substance: NALOXONE HYDROCHLORIDE\OXYCODONE HYDROCHLORIDE
     Indication: Back pain
     Dosage: UNK
     Route: 065
  13. NALOXONE HYDROCHLORIDE\OXYCODONE HYDROCHLORIDE [Concomitant]
     Active Substance: NALOXONE HYDROCHLORIDE\OXYCODONE HYDROCHLORIDE
     Indication: Abdominal pain
     Dosage: UNK, QD
     Route: 048
     Dates: start: 20250618, end: 20250703
  14. BEVACIZUMAB [Concomitant]
     Active Substance: BEVACIZUMAB
     Indication: Colorectal cancer metastatic
     Dosage: 425 MILLIGRAM, 1 CYCLICAL
     Route: 042
     Dates: start: 20250618
  15. LEUCOVORIN CALCIUM [Concomitant]
     Active Substance: LEUCOVORIN CALCIUM
     Indication: Colorectal cancer metastatic
     Dosage: 50 MILLIGRAM, 1 CYCLICAL
     Route: 042
     Dates: start: 20250618
  16. CHOLECALCIFEROL [Concomitant]
     Active Substance: CHOLECALCIFEROL
     Indication: Routine health maintenance
     Dosage: 25 MICROGRAM, QD
     Route: 048
     Dates: start: 20250306
  17. DEXAMETHASONE [Concomitant]
     Active Substance: DEXAMETHASONE
     Indication: Colorectal cancer metastatic
     Dosage: 8 MILLIGRAM, 1 CYCLICAL
     Route: 042
     Dates: start: 20250618
  18. FLUOROURACIL [Concomitant]
     Active Substance: FLUOROURACIL
     Indication: Colorectal cancer metastatic
     Dosage: 5050 MILLIGRAM, 1 CYCLICAL
     Route: 042
     Dates: start: 20250618
  19. FLUOROURACIL [Concomitant]
     Active Substance: FLUOROURACIL
     Dosage: 850 MILLIGRAM, 1 CYCLICAL
     Route: 042
     Dates: start: 20250618
  20. DOCUSATE SODIUM\SENNOSIDES [Concomitant]
     Active Substance: DOCUSATE SODIUM\SENNOSIDES
     Indication: Constipation
     Dosage: UNK, PRN (AS NECESSARY)
     Route: 048
     Dates: start: 20250529
  21. MELATONIN [Concomitant]
     Active Substance: MELATONIN
     Indication: Insomnia
     Dosage: 6 MILLIGRAM, PRN (AS NECESSARY)
     Route: 048
     Dates: start: 20241021, end: 20250630
  22. NETUPITANT\PALONOSETRON HYDROCHLORIDE [Concomitant]
     Active Substance: NETUPITANT\PALONOSETRON HYDROCHLORIDE
     Indication: Colorectal cancer metastatic
     Dosage: 1 DOSAGE FORM, 1 CYCLICAL
     Route: 048
     Dates: start: 20250618
  23. ACETAMINOPHEN [Concomitant]
     Active Substance: ACETAMINOPHEN
     Indication: Pain
     Dosage: 1000 MILLIGRAM, PRN (AS NECESSARY)
     Route: 048
     Dates: start: 20250522, end: 20250628
  24. TEMAZEPAM [Concomitant]
     Active Substance: TEMAZEPAM
     Indication: Insomnia
     Dosage: 10 MILLIGRAM, PRN
     Route: 048
     Dates: start: 20240703

REACTIONS (1)
  - Pancreatitis acute [Recovered/Resolved]

NARRATIVE: CASE EVENT DATE: 20250701
